FAERS Safety Report 13695791 (Version 1)
Quarter: 2017Q2

REPORT INFORMATION
  Report Type: Spontaneous
  Country: US (occurrence: US)
  Receive Date: 20170627
  Receipt Date: 20170627
  Transmission Date: 20170830
  Serious: Yes (Death, Other)
  Sender: FDA-Public Use
  Company Number: US-VIFOR (INTERNATIONAL) INC.-VIT-2017-00754

PATIENT
  Age: 80 Year
  Sex: Male
  Weight: 57.2 kg

DRUGS (5)
  1. VELTASSA [Suspect]
     Active Substance: PATIROMER
     Indication: HYPERKALAEMIA
     Route: 048
     Dates: start: 20170118
  2. METOPROLOL. [Concomitant]
     Active Substance: METOPROLOL
  3. NORVASC [Concomitant]
     Active Substance: AMLODIPINE BESYLATE
  4. INSULIN [Concomitant]
     Active Substance: INSULIN NOS
  5. PLAVIX [Concomitant]
     Active Substance: CLOPIDOGREL BISULFATE

REACTIONS (8)
  - Decreased appetite [Unknown]
  - Blood glucose increased [Not Recovered/Not Resolved]
  - Renal failure [Unknown]
  - Metastases to bladder [Unknown]
  - Urinary tract infection [Unknown]
  - Death [Fatal]
  - Malaise [Unknown]
  - Metastases to bone [Unknown]

NARRATIVE: CASE EVENT DATE: 20170119
